FAERS Safety Report 22651784 (Version 1)
Quarter: 2023Q2

REPORT INFORMATION
  Report Type: Spontaneous
  Country: US (occurrence: US)
  Receive Date: 20230628
  Receipt Date: 20230628
  Transmission Date: 20230722
  Serious: No
  Sender: FDA-Public Use
  Company Number: US-CTI BIOPHARMA-2023US03615

PATIENT

DRUGS (8)
  1. VONJO [Suspect]
     Active Substance: PACRITINIB
     Indication: Polycythaemia vera
     Dosage: 200 MG, BID
     Route: 048
     Dates: start: 20230216
  2. HYDROCHLOROTHIAZIDE [Concomitant]
     Active Substance: HYDROCHLOROTHIAZIDE
  3. NORVASC [Concomitant]
     Active Substance: AMLODIPINE BESYLATE
  4. TRIAMCINOLONE [Concomitant]
     Active Substance: TRIAMCINOLONE
  5. TRAMADOL [Concomitant]
     Active Substance: TRAMADOL
  6. IMODIUM [Concomitant]
     Active Substance: LOPERAMIDE HYDROCHLORIDE
  7. ZOVIRAX [Concomitant]
     Active Substance: ACYCLOVIR
  8. PEPCID [Concomitant]
     Active Substance: FAMOTIDINE

REACTIONS (5)
  - Asthma [Unknown]
  - Productive cough [Unknown]
  - Product dose omission issue [Unknown]
  - Cough [Unknown]
  - Dyspnoea [Unknown]
